FAERS Safety Report 14595829 (Version 2)
Quarter: 2018Q2

REPORT INFORMATION
  Report Type: Spontaneous
  Country: GB (occurrence: GB)
  Receive Date: 20180303
  Receipt Date: 20180406
  Transmission Date: 20180711
  Serious: Yes (Other)
  Sender: FDA-Public Use
  Company Number: GB-AMGEN-GBRSP2017181223

PATIENT
  Age: 46 Year
  Sex: Female
  Weight: 79 kg

DRUGS (6)
  1. ENBREL [Suspect]
     Active Substance: ETANERCEPT
     Indication: RHEUMATOID ARTHRITIS
     Dosage: 50 MG, WEEKLY
     Route: 058
  2. HYDROXYCHLOROQUINE [Concomitant]
     Active Substance: HYDROXYCHLOROQUINE
     Indication: RHEUMATOID ARTHRITIS
     Dosage: UNK
     Dates: start: 2013
  3. AMITRIPTYLINE [Concomitant]
     Active Substance: AMITRIPTYLINE
     Indication: SLEEP DISORDER
  4. AMITRIPTYLINE [Concomitant]
     Active Substance: AMITRIPTYLINE
     Indication: DEPRESSION
     Dosage: ^LONG TIME^
  5. ENBREL [Suspect]
     Active Substance: ETANERCEPT
     Indication: SERONEGATIVE ARTHRITIS
     Dosage: 50 MG, EVERY 2 WEEKS
     Route: 058
     Dates: start: 2017
  6. VITAMIN D [Concomitant]
     Active Substance: CHOLECALCIFEROL
     Indication: VITAMIN D DEFICIENCY
     Dosage: UNK
     Dates: start: 2013

REACTIONS (4)
  - Product use issue [Unknown]
  - Renal cyst haemorrhage [Unknown]
  - Blood urine [Unknown]
  - Renal cyst [Recovered/Resolved]

NARRATIVE: CASE EVENT DATE: 2017
